FAERS Safety Report 10153201 (Version 2)
Quarter: 2014Q3

REPORT INFORMATION
  Report Type: Spontaneous
  Country: US (occurrence: US)
  Receive Date: 20140505
  Receipt Date: 20140709
  Transmission Date: 20150326
  Serious: No
  Sender: FDA-Public Use
  Company Number: US-009507513-1404USA012166

PATIENT
  Age: 23 Year
  Sex: Female
  Weight: 102.4 kg

DRUGS (1)
  1. NEXPLANON [Suspect]
     Active Substance: ETONOGESTREL
     Indication: CONTRACEPTION
     Dosage: 68 MG, UNK
     Route: 058
     Dates: start: 20140201, end: 20140422

REACTIONS (7)
  - Affect lability [Recovering/Resolving]
  - Crying [Recovered/Resolved]
  - Depression [Recovered/Resolved]
  - Weight increased [Recovered/Resolved]
  - Personality disorder [Recovered/Resolved]
  - Headache [Recovered/Resolved]
  - Nervousness [Recovering/Resolving]

NARRATIVE: CASE EVENT DATE: 2014
